FAERS Safety Report 6782167-3 (Version None)
Quarter: 2010Q2

REPORT INFORMATION
  Report Type: 
  Country: None (occurrence: None)
  Receive Date: 20100621
  Receipt Date: 20100610
  Transmission Date: 20101027
  Serious: Yes (Other)
  Sender: FDA-Public Use
  Company Number: PHHY2010DE21284

PATIENT
  Sex: Female
  Weight: 83 kg

DRUGS (5)
  1. EXFORGE [Suspect]
     Indication: HYPERTENSION
     Dosage: 5/80 MG /DAY
     Route: 048
     Dates: start: 20090820
  2. EXFORGE [Suspect]
     Dosage: 10/160 /DAY
     Route: 048
     Dates: start: 20100204
  3. EXFORGE [Suspect]
     Dosage: 10/160 MG/DAILY
     Dates: start: 20100219
  4. ESIDRIX [Suspect]
     Indication: HYPERTENSION
     Dosage: 12.5 MG
     Dates: start: 20090820
  5. METOPROLOL SUCCINATE [Concomitant]
     Indication: HYPERTENSION
     Dosage: UNK
     Dates: start: 20091202

REACTIONS (2)
  - BLOOD PRESSURE INADEQUATELY CONTROLLED [None]
  - PARKINSON'S DISEASE [None]
